FAERS Safety Report 9630102 (Version 4)
Quarter: 2014Q2

REPORT INFORMATION
  Report Type: Spontaneous
  Country: US (occurrence: US)
  Receive Date: 20131017
  Receipt Date: 20140605
  Transmission Date: 20141212
  Serious: Yes (Death, Hospitalization, Other)
  Sender: FDA-Public Use
  Company Number: US-009507513-1310USA007363

PATIENT
  Sex: Male
  Weight: 99.77 kg

DRUGS (16)
  1. JANUVIA [Suspect]
     Indication: TYPE 2 DIABETES MELLITUS
     Dosage: 100 MG, QD
     Route: 048
     Dates: start: 20100713, end: 201201
  2. JANUMET [Suspect]
     Indication: TYPE 2 DIABETES MELLITUS
     Dosage: 50/1000 MG BID
     Route: 048
     Dates: start: 20120123, end: 20120926
  3. JANUMET [Suspect]
     Dosage: 50/1000 MG BID
     Route: 048
     Dates: start: 20100716, end: 20120125
  4. JANUMET [Suspect]
     Dosage: 50/500 MG
     Route: 048
     Dates: start: 20110226, end: 20120123
  5. JANUMET [Suspect]
     Dosage: 50/500 MG
     Route: 048
     Dates: start: 20120926
  6. BYETTA [Suspect]
     Indication: TYPE 2 DIABETES MELLITUS
     Dosage: 10 MCG/0.04 ML, 0.02 ML 1 HOUR AC BID
     Route: 058
     Dates: start: 20090413, end: 20100713
  7. BYETTA [Suspect]
     Dosage: 5 MCG/0.02 ML 1 HOUR AC BID
     Route: 058
     Dates: start: 20110223
  8. LANTUS [Concomitant]
     Indication: TYPE 2 DIABETES MELLITUS
     Dosage: 38-76 UNITS QD
     Route: 058
  9. METFORMIN [Concomitant]
     Indication: TYPE 2 DIABETES MELLITUS
     Dosage: 500-850 MG BID
     Route: 048
  10. HUMALOG [Concomitant]
     Indication: TYPE 2 DIABETES MELLITUS
     Dosage: SLIDING SCALE
     Route: 058
     Dates: end: 20110223
  11. CRESTOR [Concomitant]
     Indication: HYPERCHOLESTEROLAEMIA
     Dosage: 20 MG, QD
     Route: 048
  12. BAYER ASPIRIN [Concomitant]
     Dosage: 81 MG, QD
     Route: 048
  13. PERINDOPRIL ERBUMINE [Concomitant]
     Dosage: 4 MG, QD
     Route: 048
  14. PLAVIX [Concomitant]
     Dosage: 75 MG, QD
  15. METOPROLOL TARTRATE [Concomitant]
     Dosage: 25 MG, BID
     Route: 048
  16. SIMVASTATIN [Concomitant]
     Dosage: 80 MG, QD EVENING

REACTIONS (22)
  - Adenocarcinoma pancreas [Unknown]
  - Hyperglycaemia [Unknown]
  - Pancreatic carcinoma metastatic [Unknown]
  - Metastases to liver [Unknown]
  - Pyrexia [Unknown]
  - Death [Fatal]
  - Vomiting [Unknown]
  - Bile duct stent insertion [Unknown]
  - Drug tolerance decreased [Unknown]
  - Photon radiation therapy to pancreas [Unknown]
  - Hyperlipidaemia [Unknown]
  - Macular degeneration [Unknown]
  - Carpal tunnel syndrome [Unknown]
  - Neuropathy peripheral [Unknown]
  - Benign hepatic neoplasm [Unknown]
  - Glaucoma [Unknown]
  - Cataract operation [Unknown]
  - Anxiety [Unknown]
  - Cardiac murmur [Unknown]
  - Pneumobilia [Unknown]
  - Obstruction gastric [Unknown]
  - Drug ineffective [Unknown]
